FAERS Safety Report 9295318 (Version 1)
Quarter: 2013Q2

REPORT INFORMATION
  Report Type: Report from Study
  Country: BR (occurrence: BR)
  Receive Date: 20130517
  Receipt Date: 20130517
  Transmission Date: 20140414
  Serious: Yes (Hospitalization, Other)
  Sender: FDA-Public Use
  Company Number: PHHY2013BR049075

PATIENT
  Sex: Female
  Weight: 52 kg

DRUGS (6)
  1. ACLASTA [Suspect]
     Indication: OSTEOPOROSIS
     Dosage: 5 MG, UNK
     Route: 042
  2. ATENOLOL [Concomitant]
     Dosage: UNK UKN, UNK
  3. LOSARTAN [Concomitant]
     Dosage: UNK UKN, UNK
  4. BROMAZEPAM [Concomitant]
     Dosage: UNK UKN, UNK
  5. HYDROCHLOROTHIAZIDE [Concomitant]
     Dosage: UNK UKN, UNK
  6. AMIODARONA [Concomitant]
     Dosage: UNK UKN, UNK

REACTIONS (1)
  - Pneumonia [Recovering/Resolving]
